FAERS Safety Report 13470310 (Version 1)
Quarter: 2017Q2

REPORT INFORMATION
  Report Type: Report from Study
  Country: US (occurrence: US)
  Receive Date: 20170423
  Receipt Date: 20170423
  Transmission Date: 20170830
  Serious: Yes (Other)
  Sender: FDA-Public Use
  Company Number: US-UCBSA-2017015294

PATIENT
  Age: 55 Year
  Sex: Male

DRUGS (1)
  1. CERTOLIZUMAB PEGOL [Suspect]
     Active Substance: CERTOLIZUMAB PEGOL
     Indication: PSORIATIC ARTHROPATHY
     Dosage: 200 MG, WEEKLY (QW)
     Dates: start: 201701, end: 2017

REACTIONS (4)
  - Intentional product misuse [Unknown]
  - Ear infection [Recovered/Resolved]
  - Drug prescribing error [Unknown]
  - Drug administration error [Unknown]

NARRATIVE: CASE EVENT DATE: 201701
